FAERS Safety Report 22104354 (Version 3)
Quarter: 2023Q2

REPORT INFORMATION
  Report Type: Spontaneous
  Country: US (occurrence: US)
  Receive Date: 20230316
  Receipt Date: 20230515
  Transmission Date: 20230722
  Serious: Yes (Hospitalization)
  Sender: FDA-Public Use
  Company Number: US-PFIZER INC-202300110157

PATIENT
  Age: 49 Year
  Sex: Male
  Weight: 95.25 kg

DRUGS (1)
  1. DEPO-TESTOSTERONE [Suspect]
     Active Substance: TESTOSTERONE CYPIONATE
     Indication: Blood testosterone decreased
     Dosage: 400 MG, EVERY 14 DAYS

REACTIONS (15)
  - Product deposit [Unknown]
  - Liquid product physical issue [Unknown]
  - Illness [Not Recovered/Not Resolved]
  - Feeling abnormal [Recovering/Resolving]
  - Abdominal pain upper [Unknown]
  - Malaise [Recovering/Resolving]
  - Gastrointestinal infection [Unknown]
  - Blood glucose increased [Not Recovered/Not Resolved]
  - Condition aggravated [Not Recovered/Not Resolved]
  - Influenza [Recovering/Resolving]
  - Fatigue [Unknown]
  - Diarrhoea [Unknown]
  - Eructation [Unknown]
  - Dyspepsia [Unknown]
  - Product dose omission issue [Unknown]

NARRATIVE: CASE EVENT DATE: 20230201
